FAERS Safety Report 11063314 (Version 2)
Quarter: 2015Q3

REPORT INFORMATION
  Report Type: Spontaneous
  Country: JP (occurrence: JP)
  Receive Date: 20150424
  Receipt Date: 20150803
  Transmission Date: 20151125
  Serious: Yes (Hospitalization, Other)
  Sender: FDA-Public Use
  Company Number: JP-GLAXOSMITHKLINE-JP2015JPN036813

PATIENT
  Age: 65 Year
  Sex: Male

DRUGS (1)
  1. LAMICTAL [Suspect]
     Active Substance: LAMOTRIGINE
     Indication: EPILEPSY
     Dosage: 25 MG, BID
     Route: 048
     Dates: start: 20150106, end: 20150310

REACTIONS (12)
  - Erythema [Recovering/Resolving]
  - Drug eruption [Recovering/Resolving]
  - Ocular hyperaemia [Unknown]
  - Pyrexia [Unknown]
  - Stevens-Johnson syndrome [Recovering/Resolving]
  - Rash maculo-papular [Recovering/Resolving]
  - C-reactive protein increased [Recovering/Resolving]
  - Pneumonia [Recovering/Resolving]
  - Liver function test abnormal [Unknown]
  - Liver disorder [Recovering/Resolving]
  - Eczema [Recovering/Resolving]
  - Hyperthermia [Unknown]

NARRATIVE: CASE EVENT DATE: 20150305
